FAERS Safety Report 7362255-3 (Version None)
Quarter: 2011Q1

REPORT INFORMATION
  Report Type: 
  Country: None (occurrence: None)
  Receive Date: 20110318
  Receipt Date: 20110309
  Transmission Date: 20110831
  Serious: Yes (Other)
  Sender: FDA-Public Use
  Company Number: PHHO2011SE01817

PATIENT
  Sex: Male
  Weight: 69 kg

DRUGS (2)
  1. IMUREL [Concomitant]
  2. IMATINIB MESYLATE [Suspect]
     Indication: GASTROINTESTINAL STROMAL TUMOUR
     Dosage: 300 MG, UNK
     Route: 048
     Dates: start: 20070905

REACTIONS (3)
  - SURGERY [None]
  - RENAL CANCER [None]
  - NEOPLASM MALIGNANT [None]
